FAERS Safety Report 7878253-7 (Version None)
Quarter: 2011Q4

REPORT INFORMATION
  Report Type: 
  Country: None (occurrence: None)
  Receive Date: 20111027
  Receipt Date: 20111019
  Transmission Date: 20120403
  Serious: Yes (Life-Threatening, Hospitalization, Disabling, Other)
  Sender: FDA-Public Use
  Company Number: 2011SP049910

PATIENT
  Age: 40 Year
  Sex: Female

DRUGS (1)
  1. NUVARING [Suspect]
     Indication: CONTRACEPTION
     Dosage: 1 DF
     Dates: start: 20100101

REACTIONS (4)
  - PANCREATITIS [None]
  - HYPERTRIGLYCERIDAEMIA [None]
  - MATERNAL EXPOSURE BEFORE PREGNANCY [None]
  - PREGNANCY [None]
